FAERS Safety Report 9289915 (Version 10)
Quarter: 2014Q1

REPORT INFORMATION
  Report Type: Report from Study
  Country: DE (occurrence: DE)
  Receive Date: 20130515
  Receipt Date: 20140221
  Transmission Date: 20141002
  Serious: Yes (Hospitalization)
  Sender: FDA-Public Use
  Company Number: DE-ROCHE-1223696

PATIENT
  Age: 54 Year
  Sex: Female

DRUGS (21)
  1. PEG-INTERFERON ALFA 2A [Suspect]
     Indication: HEPATITIS C
     Route: 058
     Dates: start: 20121121
  2. RIBAVIRIN [Suspect]
     Indication: HEPATITIS C
     Route: 048
     Dates: start: 20121121
  3. TELAPREVIR [Suspect]
     Indication: HEPATITIS C
     Route: 048
     Dates: start: 20121121, end: 20130213
  4. PHENPROCOUMON [Suspect]
     Indication: PRODUCT USED FOR UNKNOWN INDICATION
     Dosage: DOSE- TARGET INR 2-3 (1 IN 1 DAY)
     Route: 048
     Dates: start: 20130429, end: 20130508
  5. BICANORM [Concomitant]
     Dosage: 1 IN MORNING AND ONE AT NIGHT
     Route: 048
  6. AMLODIPIN [Concomitant]
     Dosage: 1 IN MORNING AND ONE AT NIGHT
     Route: 065
  7. BISOPROLOL [Concomitant]
     Dosage: 1 IN MORNING AND ONE AT NIGHT
     Route: 048
  8. CLONIDIN (GERMANY) [Concomitant]
     Dosage: ONE IN MORNING
     Route: 048
  9. EBRANTIL [Concomitant]
     Dosage: 1 IN MORNING AND ONE AT NIGHT
     Route: 065
  10. MINOXIDIL [Concomitant]
     Dosage: 1 IN MORNING AND ONE AT NIGHT
     Route: 048
  11. TORASEMIDE [Concomitant]
     Route: 048
  12. HYDROCHLOROTHIAZIDE [Concomitant]
     Dosage: ONE IN MORNING
     Route: 048
  13. CANDESARTAN [Concomitant]
     Dosage: 1 IN MORNING AND ONE AT NIGHT
     Route: 048
  14. LEVOTHYROXINE [Concomitant]
     Route: 048
  15. CALCIUM CARBONATE [Concomitant]
     Dosage: ONE IN MORNING AND 2 IN AFTERNOON
     Route: 065
  16. ROCALTROL [Concomitant]
     Dosage: ONE IN MORNING
     Route: 065
  17. PANTOPRAZOL [Concomitant]
     Dosage: ONE AT NIGHT
     Route: 065
  18. RENAGEL [Concomitant]
     Route: 065
  19. ARANESP [Concomitant]
     Route: 065
  20. SPIRIVA [Concomitant]
     Dosage: ONE IN MORNING
     Route: 065
  21. NITROLINGUAL SPRAY [Concomitant]
     Dosage: WHEN NEEDED
     Route: 065

REACTIONS (3)
  - Haematoma [Not Recovered/Not Resolved]
  - Compartment syndrome [Recovered/Resolved]
  - Atrial flutter [Not Recovered/Not Resolved]
